FAERS Safety Report 13781479 (Version 1)
Quarter: 2017Q3

REPORT INFORMATION
  Report Type: Spontaneous
  Country: US (occurrence: US)
  Receive Date: 20170724
  Receipt Date: 20170724
  Transmission Date: 20171127
  Serious: Yes (Hospitalization)
  Sender: FDA-Public Use
  Company Number: None

PATIENT
  Age: 67 Year
  Sex: Male
  Weight: 90 kg

DRUGS (14)
  1. CARVEDILOL. [Concomitant]
     Active Substance: CARVEDILOL
  2. POTASSIUM GLUCONATE [Concomitant]
     Active Substance: POTASSIUM GLUCONATE
  3. XANAX [Concomitant]
     Active Substance: ALPRAZOLAM
  4. MILK THISTLE [Concomitant]
     Active Substance: MILK THISTLE
  5. CIPRO [Suspect]
     Active Substance: CIPROFLOXACIN HYDROCHLORIDE
     Indication: DIVERTICULITIS
     Dosage: ?          QUANTITY:1 CAPSULE(S);?
     Route: 048
  6. COUMADIN [Concomitant]
     Active Substance: WARFARIN SODIUM
  7. LEXAPRO [Concomitant]
     Active Substance: ESCITALOPRAM OXALATE
  8. MAGNESIUM/CALCIUM/ZINC [Concomitant]
  9. CARTEZEM [Concomitant]
  10. LOW DOSE ASPIRIN [Concomitant]
     Active Substance: ASPIRIN
  11. DEPAKOTE [Concomitant]
     Active Substance: DIVALPROEX SODIUM
  12. SIMVASTATIN. [Concomitant]
     Active Substance: SIMVASTATIN
  13. HYDROCODONE [Concomitant]
     Active Substance: HYDROCODONE
  14. LOVONOX [Concomitant]

REACTIONS (4)
  - Clostridium test positive [None]
  - Inflammation [None]
  - Muscle spasms [None]
  - Diarrhoea [None]

NARRATIVE: CASE EVENT DATE: 20170718
